FAERS Safety Report 23700580 (Version 8)
Quarter: 2025Q2

REPORT INFORMATION
  Report Type: Report from Study
  Country: CA (occurrence: CA)
  Receive Date: 20240403
  Receipt Date: 20250513
  Transmission Date: 20250716
  Serious: Yes (Hospitalization, Other)
  Sender: TAKEDA
  Company Number: CA-TAKEDA-2018TUS036530

PATIENT
  Age: 71 Year
  Sex: Female

DRUGS (39)
  1. VEDOLIZUMAB [Suspect]
     Active Substance: VEDOLIZUMAB
     Indication: Crohn^s disease
  2. VEDOLIZUMAB [Suspect]
     Active Substance: VEDOLIZUMAB
  3. VEDOLIZUMAB [Suspect]
     Active Substance: VEDOLIZUMAB
  4. VEDOLIZUMAB [Suspect]
     Active Substance: VEDOLIZUMAB
  5. VEDOLIZUMAB [Suspect]
     Active Substance: VEDOLIZUMAB
  6. VEDOLIZUMAB [Suspect]
     Active Substance: VEDOLIZUMAB
  7. VEDOLIZUMAB [Suspect]
     Active Substance: VEDOLIZUMAB
  8. VEDOLIZUMAB [Suspect]
     Active Substance: VEDOLIZUMAB
  9. VEDOLIZUMAB [Suspect]
     Active Substance: VEDOLIZUMAB
  10. VEDOLIZUMAB [Suspect]
     Active Substance: VEDOLIZUMAB
  11. VEDOLIZUMAB [Suspect]
     Active Substance: VEDOLIZUMAB
  12. VEDOLIZUMAB [Suspect]
     Active Substance: VEDOLIZUMAB
  13. PENTASA [Concomitant]
     Active Substance: MESALAMINE
  14. CYANOCOBALAMIN [Concomitant]
     Active Substance: CYANOCOBALAMIN
  15. OMEPRAZOLE [Concomitant]
     Active Substance: OMEPRAZOLE
  16. VITAMIN D [Concomitant]
     Active Substance: VITAMIN D NOS
  17. METOPROLOL [Concomitant]
     Active Substance: METOPROLOL
  18. CALCIUM [Concomitant]
     Active Substance: CALCIUM
  19. ROSUVASTATIN [Concomitant]
     Active Substance: ROSUVASTATIN
  20. CYCLOBENZAPRINE [Concomitant]
     Active Substance: CYCLOBENZAPRINE
  21. FUROSEMIDE [Concomitant]
     Active Substance: FUROSEMIDE
  22. Pms ismn [Concomitant]
  23. ASPIRIN [Concomitant]
     Active Substance: ASPIRIN
  24. BETAHISTINE [Concomitant]
     Active Substance: BETAHISTINE
  25. ATROVENT [Concomitant]
     Active Substance: IPRATROPIUM BROMIDE
  26. FLOVENT [Concomitant]
     Active Substance: FLUTICASONE PROPIONATE
  27. GABAPENTIN [Concomitant]
     Active Substance: GABAPENTIN
  28. LORAZEPAM [Concomitant]
     Active Substance: LORAZEPAM
  29. OXAZEPAM [Concomitant]
     Active Substance: OXAZEPAM
  30. ALBUTEROL [Concomitant]
     Active Substance: ALBUTEROL
  31. CODEINE [Concomitant]
     Active Substance: CODEINE
  32. ONDANSETRON [Concomitant]
     Active Substance: ONDANSETRON
  33. DEXAMETHASONE [Concomitant]
     Active Substance: DEXAMETHASONE
  34. ETOPOSIDE [Concomitant]
     Active Substance: ETOPOSIDE
  35. MAGNESIUM [Concomitant]
     Active Substance: MAGNESIUM
  36. SOLIFENACIN [Concomitant]
     Active Substance: SOLIFENACIN
  37. SUCRALFATE [Concomitant]
     Active Substance: SUCRALFATE
  38. METOCLOPRAMIDE [Concomitant]
     Active Substance: METOCLOPRAMIDE
  39. DICLOFENAC DIETHYLAMINE [Concomitant]
     Active Substance: DICLOFENAC DIETHYLAMINE
     Route: 061

REACTIONS (13)
  - Hypotension [Recovering/Resolving]
  - Tachycardia [Recovering/Resolving]
  - Dyspnoea [Recovering/Resolving]
  - Lung neoplasm malignant [Unknown]
  - Cough [Recovering/Resolving]
  - Pyrexia [Recovering/Resolving]
  - Body temperature decreased [Unknown]
  - Respiratory rate increased [Recovering/Resolving]
  - Blood pressure fluctuation [Unknown]
  - Chest pain [Unknown]
  - Heart rate increased [Unknown]
  - Blood pressure increased [Unknown]
  - Nasal congestion [Recovering/Resolving]

NARRATIVE: CASE EVENT DATE: 20240317
